FAERS Safety Report 25586705 (Version 3)
Quarter: 2025Q4

REPORT INFORMATION
  Report Type: Spontaneous
  Country: CA (occurrence: CA)
  Receive Date: 20250721
  Receipt Date: 20251017
  Transmission Date: 20260118
  Serious: Yes (Hospitalization, Other)
  Sender: DR REDDYS
  Company Number: None

PATIENT
  Age: 75 Year
  Sex: Male

DRUGS (28)
  1. AZACITIDINE [Suspect]
     Active Substance: AZACITIDINE
     Indication: Acute myeloid leukaemia
     Dosage: AZACITIDINE FOR INJECTION SINGLE-USE VIAL
  2. AZACITIDINE [Suspect]
     Active Substance: AZACITIDINE
     Dosage: AZACITIDINE FOR INJECTION SINGLE-USE VIAL
  3. AZACITIDINE [Suspect]
     Active Substance: AZACITIDINE
     Dosage: AZACITIDINE FOR INJECTION SINGLE-USE VIAL
  4. AZACITIDINE [Suspect]
     Active Substance: AZACITIDINE
     Dosage: AZACITIDINE FOR INJECTION SINGLE-USE VIAL
  5. AZACITIDINE [Suspect]
     Active Substance: AZACITIDINE
     Dosage: AZACITIDINE FOR INJECTION SINGLE-USE VIAL
  6. AZACITIDINE [Suspect]
     Active Substance: AZACITIDINE
     Dosage: AZACITIDINE FOR INJECTION SINGLE-USE VIAL
  7. AZACITIDINE [Suspect]
     Active Substance: AZACITIDINE
  8. AZACITIDINE [Suspect]
     Active Substance: AZACITIDINE
  9. AZACITIDINE [Suspect]
     Active Substance: AZACITIDINE
  10. AZACITIDINE [Suspect]
     Active Substance: AZACITIDINE
  11. AZACITIDINE [Suspect]
     Active Substance: AZACITIDINE
  12. AZACITIDINE [Suspect]
     Active Substance: AZACITIDINE
  13. AZACITIDINE [Suspect]
     Active Substance: AZACITIDINE
  14. AZACITIDINE [Suspect]
     Active Substance: AZACITIDINE
  15. VENETOCLAX [Suspect]
     Active Substance: VENETOCLAX
     Indication: Acute myeloid leukaemia
     Route: 048
  16. VENETOCLAX [Suspect]
     Active Substance: VENETOCLAX
     Route: 048
  17. VENETOCLAX [Suspect]
     Active Substance: VENETOCLAX
     Route: 048
  18. VENETOCLAX [Suspect]
     Active Substance: VENETOCLAX
     Route: 048
  19. VENETOCLAX [Suspect]
     Active Substance: VENETOCLAX
     Route: 048
  20. VENETOCLAX [Suspect]
     Active Substance: VENETOCLAX
     Route: 048
  21. VENETOCLAX [Suspect]
     Active Substance: VENETOCLAX
     Route: 048
  22. VENETOCLAX [Suspect]
     Active Substance: VENETOCLAX
     Route: 048
  23. VENETOCLAX [Suspect]
     Active Substance: VENETOCLAX
     Route: 048
  24. VENETOCLAX [Suspect]
     Active Substance: VENETOCLAX
     Route: 048
  25. VENETOCLAX [Suspect]
     Active Substance: VENETOCLAX
     Route: 048
  26. VENETOCLAX [Suspect]
     Active Substance: VENETOCLAX
     Route: 048
  27. VENETOCLAX [Suspect]
     Active Substance: VENETOCLAX
     Route: 048
  28. VENETOCLAX [Suspect]
     Active Substance: VENETOCLAX
     Route: 048

REACTIONS (12)
  - Necrotising fasciitis [Recovered/Resolved]
  - Atelectasis [Recovered/Resolved]
  - Gas gangrene [Recovered/Resolved]
  - Gastrointestinal disorder [Recovered/Resolved]
  - Incarcerated inguinal hernia [Recovered/Resolved]
  - Inguinal hernia [Recovered/Resolved]
  - Intestinal adenocarcinoma [Recovered/Resolved]
  - Localised oedema [Recovered/Resolved]
  - Lung consolidation [Recovered/Resolved]
  - Medical device implantation [Recovered/Resolved]
  - Oedema peripheral [Recovered/Resolved]
  - Superinfection [Recovered/Resolved]
